FAERS Safety Report 9800234 (Version 6)
Quarter: 2016Q1

REPORT INFORMATION
  Report Type: Spontaneous
  Country: US (occurrence: US)
  Receive Date: 20140106
  Receipt Date: 20160107
  Transmission Date: 20160526
  Serious: Yes (Hospitalization, Disabling, Other)
  Sender: FDA-Public Use
  Company Number: US-009507513-1109USA02507

PATIENT
  Sex: Male

DRUGS (4)
  1. FINASTERIDE. [Suspect]
     Active Substance: FINASTERIDE
     Indication: ANDROGENETIC ALOPECIA
     Dosage: 1 MG, UNK
     Dates: start: 1999
  2. PROPECIA [Suspect]
     Active Substance: FINASTERIDE
     Dosage: 1 MG, QD
     Route: 048
     Dates: start: 2003
  3. PROPECIA [Suspect]
     Active Substance: FINASTERIDE
     Indication: ANDROGENETIC ALOPECIA
     Dosage: 1 MG, UNK
     Route: 048
     Dates: start: 1999
  4. FINASTERIDE. [Suspect]
     Active Substance: FINASTERIDE
     Dosage: 1 MG, UNK
     Route: 048
     Dates: start: 2003

REACTIONS (33)
  - Hypogonadism [Unknown]
  - Eczema [Unknown]
  - Suicidal ideation [Not Recovered/Not Resolved]
  - Feminisation acquired [Unknown]
  - Mental impairment [Unknown]
  - Erectile dysfunction [Unknown]
  - Psoriasis [Unknown]
  - Emotional distress [Unknown]
  - Cerebral disorder [Unknown]
  - Blood cholesterol increased [Unknown]
  - Drug dependence [Unknown]
  - Self esteem decreased [Unknown]
  - Depression [Not Recovered/Not Resolved]
  - Gynaecomastia [Unknown]
  - Tinea pedis [Unknown]
  - Anxiety disorder [Not Recovered/Not Resolved]
  - Tremor [Unknown]
  - Semen volume decreased [Unknown]
  - Hyperlipidaemia [Unknown]
  - Diverticulum [Unknown]
  - Weight increased [Unknown]
  - Attention deficit/hyperactivity disorder [Unknown]
  - Treatment noncompliance [Unknown]
  - Libido decreased [Unknown]
  - Anogenital warts [Unknown]
  - Allergic respiratory symptom [Unknown]
  - Affective disorder [Unknown]
  - Amnesia [Unknown]
  - Narcissistic personality disorder [Unknown]
  - Nephrolithiasis [Unknown]
  - Scrotal pain [Unknown]
  - Viral upper respiratory tract infection [Unknown]
  - Nail avulsion [Unknown]

NARRATIVE: CASE EVENT DATE: 1999
